FAERS Safety Report 9221771 (Version 2)
Quarter: 2013Q2

REPORT INFORMATION
  Report Type: Spontaneous
  Country: FR (occurrence: FR)
  Receive Date: 20130410
  Receipt Date: 20130422
  Transmission Date: 20140414
  Serious: Yes (Hospitalization)
  Sender: FDA-Public Use
  Company Number: FR-JNJFOC-20130402340

PATIENT
  Age: 91 Year
  Sex: Female

DRUGS (7)
  1. XARELTO [Suspect]
     Indication: CEREBROVASCULAR ACCIDENT PROPHYLAXIS
     Route: 048
     Dates: start: 201301, end: 20130226
  2. XARELTO [Suspect]
     Indication: ATRIAL FIBRILLATION
     Route: 048
     Dates: start: 201301, end: 20130226
  3. DICLOFENAC [Suspect]
     Indication: OSTEOARTHRITIS
     Route: 062
  4. OMEPRAZOLE MAGNESIUM [Concomitant]
     Route: 065
  5. CARDENSIEL [Concomitant]
     Route: 065
  6. APROVEL [Concomitant]
     Route: 065
  7. DIFFU K [Concomitant]
     Route: 065

REACTIONS (3)
  - Blood urine present [Recovered/Resolved]
  - Weight decreased [Recovered/Resolved]
  - Epistaxis [Recovered/Resolved]
